FAERS Safety Report 9764497 (Version 1)
Quarter: 2013Q4

REPORT INFORMATION
  Report Type: Report from Study
  Country: AR (occurrence: AR)
  Receive Date: 20131217
  Receipt Date: 20131217
  Transmission Date: 20140711
  Serious: Yes (Hospitalization, Other)
  Sender: FDA-Public Use
  Company Number: AR-ROCHE-1319689

PATIENT
  Sex: Male

DRUGS (2)
  1. RANIBIZUMAB [Suspect]
     Indication: GLAUCOMA
     Route: 050
     Dates: start: 2011
  2. RANIBIZUMAB [Suspect]
     Indication: EYE DISORDER
     Route: 050
     Dates: start: 2012

REACTIONS (9)
  - General physical health deterioration [Recovering/Resolving]
  - Pain [Recovering/Resolving]
  - Lung disorder [Recovering/Resolving]
  - Cardiac arrest [Recovering/Resolving]
  - Weight decreased [Unknown]
  - Balance disorder [Not Recovered/Not Resolved]
  - Visual acuity reduced [Not Recovered/Not Resolved]
  - Visual impairment [Not Recovered/Not Resolved]
  - Drug ineffective [Not Recovered/Not Resolved]
